FAERS Safety Report 5773374-7 (Version None)
Quarter: 2008Q2

REPORT INFORMATION
  Report Type: 
  Country: None (occurrence: None)
  Receive Date: 20080616
  Receipt Date: 20080604
  Transmission Date: 20081010
  Serious: Yes (Other)
  Sender: FDA-Public Use
  Company Number: US-JNJFOC-20080602069

PATIENT
  Sex: Female
  Weight: 89.81 kg

DRUGS (1)
  1. REMICADE [Suspect]
     Indication: PITYRIASIS RUBRA PILARIS
     Route: 042

REACTIONS (1)
  - COLON CANCER [None]
